FAERS Safety Report 5156669-X (Version None)
Quarter: 2006Q4

REPORT INFORMATION
  Report Type: 
  Country: None (occurrence: None)
  Receive Date: 20061115
  Receipt Date: 20061101
  Transmission Date: 20070319
  Serious: Yes (Other)
  Sender: FDA-Public Use
  Company Number: 2006134738

PATIENT
  Sex: Female

DRUGS (1)
  1. LIPITOR [Suspect]
     Dosage: 10 (10 MG, 1 IN 1 D)
     Dates: end: 20061031

REACTIONS (4)
  - IMPAIRED DRIVING ABILITY [None]
  - MOBILITY DECREASED [None]
  - PAIN [None]
  - RIB FRACTURE [None]
